FAERS Safety Report 17198595 (Version 1)
Quarter: 2019Q4

REPORT INFORMATION
  Report Type: Spontaneous
  Country: DE (occurrence: DE)
  Receive Date: 20191225
  Receipt Date: 20191225
  Transmission Date: 20200122
  Serious: Yes (Other)
  Sender: FDA-Public Use
  Company Number: DE-TEVA-2019-DE-1156102

PATIENT
  Age: 85 Year
  Sex: Male
  Weight: 69 kg

DRUGS (3)
  1. AMLODIPIN HEXAL 5 MG [Concomitant]
     Indication: HYPERTENSION
     Dosage: 0-0-1. 5 MG
     Route: 048
  2. NOVALGIN (METAMIZOLE SODIUM) [Concomitant]
     Active Substance: METAMIZOLE SODIUM
     Indication: PAIN
     Dosage: IF NECESSARY
     Route: 048
  3. RAMIPRIL 2.5MG [Suspect]
     Active Substance: RAMIPRIL
     Indication: HYPERTENSION
     Dosage: 1-0-0
     Route: 048

REACTIONS (2)
  - Hepatitis acute [Not Recovered/Not Resolved]
  - Cholestasis [Not Recovered/Not Resolved]
